FAERS Safety Report 10991124 (Version 4)
Quarter: 2020Q3

REPORT INFORMATION
  Report Type: Report from Study
  Country: JP (occurrence: JP)
  Receive Date: 20150406
  Receipt Date: 20200922
  Transmission Date: 20201102
  Serious: Yes (Other)
  Sender: FDA-Public Use
  Company Number: JP-AMGEN-JPNCT2015032976

PATIENT
  Age: 57 Year
  Sex: Male
  Weight: 94 kg

DRUGS (100)
  1. ROMIPLOSTIM [Suspect]
     Active Substance: ROMIPLOSTIM
     Dosage: 10 MICROGRAM/KILOGRAM, QD
     Route: 058
     Dates: start: 20130723, end: 20130806
  2. SOL?MELCORT [Concomitant]
     Active Substance: METHYLPREDNISOLONE SODIUM SUCCINATE
     Indication: IMMUNE THROMBOCYTOPENIA
     Dosage: 1000 MG, UNK
     Route: 065
     Dates: start: 20130701, end: 20130718
  3. PACETCOOL [Concomitant]
     Active Substance: CEFOTIAM HYDROCHLORIDE
     Indication: ABSCESS NECK
     Dosage: UNK
     Route: 042
  4. PROPOFOL. [Concomitant]
     Active Substance: PROPOFOL
     Route: 065
  5. NICARDIPINE HYDROCHLORIDE. [Concomitant]
     Active Substance: NICARDIPINE HYDROCHLORIDE
     Indication: HYPERTENSION
     Dosage: UNK
     Route: 065
  6. NICARDIPINE HYDROCHLORIDE. [Concomitant]
     Active Substance: NICARDIPINE HYDROCHLORIDE
     Route: 065
  7. QUETIAPINE. [Concomitant]
     Active Substance: QUETIAPINE
     Indication: SCHIZOPHRENIA
     Dosage: UNK
     Route: 048
  8. ABILIFY [Concomitant]
     Active Substance: ARIPIPRAZOLE
     Indication: SCHIZOPHRENIA
     Dosage: UNK
     Route: 065
  9. LOXONIN [Concomitant]
     Active Substance: LOXOPROFEN SODIUM
     Indication: PROPHYLAXIS
     Dosage: UNK
     Route: 065
  10. NIPOLAZIN [Concomitant]
     Route: 048
  11. VOLTAREN [Concomitant]
     Active Substance: DICLOFENAC SODIUM
     Indication: PROPHYLAXIS
     Dosage: UNK
     Route: 065
  12. MIRACLID [Concomitant]
     Active Substance: ULINASTATIN
     Indication: PROPHYLAXIS
     Dosage: UNK
     Route: 065
  13. TAKEPRON [Concomitant]
     Active Substance: LANSOPRAZOLE
     Indication: PROPHYLAXIS
     Dosage: UNK
     Route: 042
  14. ROMIPLOSTIM [Suspect]
     Active Substance: ROMIPLOSTIM
     Dosage: 5.13 MICROGRAM/KILOGRAM, QD
     Route: 058
     Dates: start: 20130716, end: 20130716
  15. RITUXAN [Suspect]
     Active Substance: RITUXIMAB
     Indication: IMMUNE THROMBOCYTOPENIA
     Dosage: 700 MG, 1X/WEEK
     Route: 065
     Dates: start: 20130814, end: 20130905
  16. OMEPRAZOLE. [Concomitant]
     Active Substance: OMEPRAZOLE
     Indication: PROPHYLAXIS
     Dosage: UNK
     Route: 065
  17. OMEPRAZOLE. [Concomitant]
     Active Substance: OMEPRAZOLE
     Route: 065
  18. CLINDAMYCIN. [Concomitant]
     Active Substance: CLINDAMYCIN
     Route: 065
  19. PROPOFOL. [Concomitant]
     Active Substance: PROPOFOL
     Indication: ABSCESS NECK
     Dosage: UNK
     Route: 065
  20. FULCALIQ [Concomitant]
     Active Substance: AMINO ACIDS\CARBOHYDRATES\ELECTROLYTES NOS\VITAMINS
     Route: 065
  21. CARBAZOCHROME SULFONATE NA [Concomitant]
     Indication: ABSCESS NECK
     Dosage: UNK
     Route: 048
  22. PRECEDEX [Concomitant]
     Active Substance: DEXMEDETOMIDINE HYDROCHLORIDE
     Route: 065
  23. BFLUID [Concomitant]
     Active Substance: AMINO ACIDS\DEXTROSE\ELECTROLYTES NOS\VITAMINS
     Indication: ABSCESS NECK
     Dosage: UNK
     Route: 065
  24. BROTIZOLAM [Concomitant]
     Active Substance: BROTIZOLAM
     Indication: SCHIZOPHRENIA
     Dosage: UNK
     Route: 048
  25. ENTERONON?R [Concomitant]
     Active Substance: PROBIOTICS NOS
     Route: 048
  26. LONASEN [Concomitant]
     Active Substance: BLONANSERIN
     Indication: SCHIZOPHRENIA
     Dosage: UNK
     Route: 048
  27. ROMIPLOSTIM [Suspect]
     Active Substance: ROMIPLOSTIM
     Indication: IMMUNE THROMBOCYTOPENIA
     Dosage: 2.67 MICROGRAM/KILOGRAM, QD
     Route: 058
     Dates: start: 20130709, end: 20130709
  28. REVOLADE [Concomitant]
     Active Substance: ELTROMBOPAG
     Indication: IMMUNE THROMBOCYTOPENIA
     Dosage: 50 MG, UNK
     Route: 048
     Dates: start: 20130701, end: 20130708
  29. VENOGLOBULIN [Concomitant]
     Active Substance: HUMAN IMMUNOGLOBULIN G
     Indication: IMMUNE THROMBOCYTOPENIA
     Dosage: 40 MG/KG, UNK
     Route: 065
     Dates: start: 20130712, end: 20130716
  30. BFLUID [Concomitant]
     Active Substance: AMINO ACIDS\DEXTROSE\ELECTROLYTES NOS\VITAMINS
     Route: 065
  31. BISOLVON [Concomitant]
     Active Substance: BROMHEXINE HYDROCHLORIDE
     Indication: ABSCESS NECK
     Dosage: UNK
     Route: 065
  32. MAGNESIUM OXIDE. [Concomitant]
     Active Substance: MAGNESIUM OXIDE
     Route: 048
  33. SELBEX [Concomitant]
     Active Substance: TEPRENONE
     Indication: PROPHYLAXIS
     Dosage: UNK
     Route: 048
  34. LOXONIN [Concomitant]
     Active Substance: LOXOPROFEN SODIUM
     Route: 065
  35. MUCODYNE [Concomitant]
     Active Substance: CARBOCYSTEINE
     Indication: ABSCESS NECK
     Dosage: UNK
     Route: 048
  36. MIRACLID [Concomitant]
     Active Substance: ULINASTATIN
     Route: 065
  37. MIDAZOLAM. [Concomitant]
     Active Substance: MIDAZOLAM
     Indication: ABSCESS NECK
     Dosage: UNK
     Route: 065
  38. FULCALIQ [Concomitant]
     Active Substance: AMINO ACIDS\CARBOHYDRATES\ELECTROLYTES NOS\VITAMINS
     Indication: ABSCESS NECK
     Dosage: UNK
     Route: 065
  39. REBAMIPIDE [Concomitant]
     Active Substance: REBAMIPIDE
     Indication: SCHIZOPHRENIA
     Dosage: UNK
     Route: 065
  40. BROTIZOLAM [Concomitant]
     Active Substance: BROTIZOLAM
     Route: 048
  41. ENTERONON?R [Concomitant]
     Active Substance: PROBIOTICS NOS
     Route: 048
  42. DIOVAN [Concomitant]
     Active Substance: VALSARTAN
     Route: 048
  43. ROZEREM [Concomitant]
     Active Substance: RAMELTEON
     Route: 048
  44. LULLAN [Concomitant]
     Active Substance: PEROSPIRONE HYDROCHLORIDE
     Indication: SCHIZOPHRENIA
     Dosage: UNK
     Route: 048
  45. NEUART [Concomitant]
     Active Substance: ANTITHROMBIN III HUMAN
     Route: 065
  46. TAKEPRON [Concomitant]
     Active Substance: LANSOPRAZOLE
     Route: 042
  47. FENTANYL CITRATE. [Concomitant]
     Active Substance: FENTANYL CITRATE
     Indication: ABSCESS NECK
     Route: 065
  48. QUETIAPINE FUMARATE. [Concomitant]
     Active Substance: QUETIAPINE FUMARATE
     Indication: SCHIZOPHRENIA
     Route: 048
  49. REVOLADE [Concomitant]
     Active Substance: ELTROMBOPAG
     Indication: IMMUNE THROMBOCYTOPENIA
  50. GAMMA?GLOBULIN [Concomitant]
     Active Substance: IMMUNE GLOBULIN NOS
     Indication: IMMUNE THROMBOCYTOPENIA
  51. SANGLOPOR [Concomitant]
     Active Substance: HUMAN IMMUNOGLOBULIN G
     Indication: IMMUNE THROMBOCYTOPENIA
     Dosage: 40 MG, UNK
     Route: 065
     Dates: start: 20131023, end: 20131027
  52. CLINDAMYCIN. [Concomitant]
     Active Substance: CLINDAMYCIN
     Indication: ABSCESS NECK
     Dosage: UNK
     Route: 065
  53. SULBACILLIN [Concomitant]
     Active Substance: AMPICILLIN SODIUM\SULBACTAM SODIUM
     Route: 042
  54. ARTANE [Concomitant]
     Active Substance: TRIHEXYPHENIDYL HYDROCHLORIDE
     Route: 048
  55. LAXOBERON [Concomitant]
     Active Substance: SODIUM PICOSULFATE
     Route: 048
  56. BAKTAR [Concomitant]
     Active Substance: SULFAMETHOXAZOLE\TRIMETHOPRIM
     Indication: PROPHYLAXIS
     Dosage: UNK
     Route: 048
  57. BAKTAR [Concomitant]
     Active Substance: SULFAMETHOXAZOLE\TRIMETHOPRIM
     Route: 048
  58. DIOVAN [Concomitant]
     Active Substance: VALSARTAN
     Indication: HYPERTENSION
     Dosage: UNK
     Route: 048
  59. AMLODIN [Concomitant]
     Active Substance: AMLODIPINE BESYLATE
     Route: 048
  60. RITUXAN [Suspect]
     Active Substance: RITUXIMAB
     Indication: IMMUNE THROMBOCYTOPENIA
  61. SOL?MELCORT [Concomitant]
     Active Substance: METHYLPREDNISOLONE SODIUM SUCCINATE
     Dosage: 1000 MG, UNK
     Route: 065
     Dates: start: 20130716, end: 20130718
  62. GAMMA?GLOBULIN [Concomitant]
     Active Substance: IMMUNE GLOBULIN NOS
     Indication: IMMUNE THROMBOCYTOPENIA
     Dosage: 40 MG/KG, UNK
     Route: 065
     Dates: start: 20130626, end: 20130630
  63. VENOGLOBULIN [Concomitant]
     Active Substance: HUMAN IMMUNOGLOBULIN G
     Indication: IMMUNE THROMBOCYTOPENIA
  64. FENTANYL. [Concomitant]
     Active Substance: FENTANYL
     Indication: ABSCESS NECK
     Dosage: UNK
     Route: 065
  65. PACETCOOL [Concomitant]
     Active Substance: CEFOTIAM HYDROCHLORIDE
     Route: 042
  66. FULCALIQ [Concomitant]
     Active Substance: AMINO ACIDS\CARBOHYDRATES\ELECTROLYTES NOS\VITAMINS
     Dosage: UNK
     Route: 065
  67. INTRALIPOS [Concomitant]
     Active Substance: SOYBEAN OIL
     Indication: ABSCESS NECK
     Dosage: UNK
     Route: 065
  68. INTRALIPOS [Concomitant]
     Active Substance: SOYBEAN OIL
     Route: 065
  69. ZYPREXA [Concomitant]
     Active Substance: OLANZAPINE
     Route: 065
  70. ARTANE [Concomitant]
     Active Substance: TRIHEXYPHENIDYL HYDROCHLORIDE
     Indication: SCHIZOPHRENIA
     Dosage: UNK
     Route: 048
  71. LAXOBERON [Concomitant]
     Active Substance: SODIUM PICOSULFATE
     Indication: CONSTIPATION
     Dosage: UNK
     Route: 065
  72. SELBEX [Concomitant]
     Active Substance: TEPRENONE
     Route: 048
  73. LONASEN [Concomitant]
     Active Substance: BLONANSERIN
     Route: 048
  74. PNEUMOVAX 23 [Concomitant]
     Active Substance: PNEUMOCOCCAL VACCINE, POLYVALENT 23
     Indication: PROPHYLAXIS
     Dosage: UNK
     Route: 065
  75. CEFAZOLIN NA [Concomitant]
     Active Substance: CEFAZOLIN SODIUM
     Indication: PROPHYLAXIS
     Dosage: UNK
     Route: 065
  76. CEFAZOLIN NA [Concomitant]
     Active Substance: CEFAZOLIN SODIUM
     Route: 065
  77. PREDONINE [Suspect]
     Active Substance: PREDNISOLONE
     Indication: IMMUNE THROMBOCYTOPENIA
     Dosage: 5 MG, UNK
     Route: 048
     Dates: start: 20130627, end: 20131122
  78. SULBACILLIN [Concomitant]
     Active Substance: AMPICILLIN SODIUM\SULBACTAM SODIUM
     Indication: ABSCESS NECK
     Dosage: UNK
     Route: 042
  79. HUMULIN R [Concomitant]
     Active Substance: INSULIN HUMAN
     Indication: DIABETES MELLITUS
     Dosage: UNK
     Route: 065
  80. HUMULIN R [Concomitant]
     Active Substance: INSULIN HUMAN
     Route: 065
  81. NORADRENALINE [Concomitant]
     Active Substance: NOREPINEPHRINE
     Indication: ABSCESS NECK
     Dosage: UNK
     Route: 065
  82. CARBAZOCHROME SULFONATE NA [Concomitant]
     Route: 048
  83. PRECEDEX [Concomitant]
     Active Substance: DEXMEDETOMIDINE HYDROCHLORIDE
     Indication: ABSCESS NECK
     Dosage: UNK
     Route: 065
  84. AKINETON [Concomitant]
     Active Substance: BIPERIDEN HYDROCHLORIDE
     Indication: SCHIZOPHRENIA
     Dosage: UNK
     Route: 065
  85. REBAMIPIDE [Concomitant]
     Active Substance: REBAMIPIDE
     Route: 065
  86. ENTERONON?R [Concomitant]
     Active Substance: PROBIOTICS NOS
     Indication: CONSTIPATION
     Dosage: UNK
     Route: 048
  87. ROZEREM [Concomitant]
     Active Substance: RAMELTEON
     Indication: INSOMNIA
     Dosage: UNK
     Route: 048
  88. NIPOLAZIN [Concomitant]
     Indication: PROPHYLAXIS
     Dosage: UNK
     Route: 048
  89. NORADRENALINE (NORPINEPHRINE) [Concomitant]
     Active Substance: NOREPINEPHRINE
     Indication: ABSCESS NECK
     Route: 065
  90. SOL?MELCORT [Concomitant]
     Active Substance: METHYLPREDNISOLONE SODIUM SUCCINATE
     Indication: IMMUNE THROMBOCYTOPENIA
     Dosage: 1000 MG, UNK
     Route: 065
     Dates: start: 20130701, end: 20130703
  91. SANGLOPOR [Concomitant]
     Active Substance: HUMAN IMMUNOGLOBULIN G
     Indication: IMMUNE THROMBOCYTOPENIA
  92. MIDAZOLAM. [Concomitant]
     Active Substance: MIDAZOLAM
     Route: 065
  93. ZYPREXA [Concomitant]
     Active Substance: OLANZAPINE
     Indication: SCHIZOPHRENIA
     Dosage: UNK
     Route: 065
  94. ABILIFY [Concomitant]
     Active Substance: ARIPIPRAZOLE
     Route: 065
  95. MAGNESIUM OXIDE. [Concomitant]
     Active Substance: MAGNESIUM OXIDE
     Indication: CONSTIPATION
     Dosage: UNK
     Route: 048
  96. AMLODIN [Concomitant]
     Active Substance: AMLODIPINE BESYLATE
     Indication: HYPERTENSION
     Dosage: UNK
     Route: 048
  97. LULLAN [Concomitant]
     Active Substance: PEROSPIRONE HYDROCHLORIDE
     Route: 048
  98. MUCODYNE [Concomitant]
     Active Substance: CARBOCYSTEINE
     Route: 048
  99. NEUART [Concomitant]
     Active Substance: ANTITHROMBIN III HUMAN
     Indication: PROPHYLAXIS
     Dosage: UNK
     Route: 065
  100. PNEUMOVAX NP [Concomitant]
     Active Substance: PNEUMOCOCCAL VACCINE, POLYVALENT 23
     Indication: PROPHYLAXIS
     Route: 065

REACTIONS (5)
  - Cerebral haemorrhage [Recovering/Resolving]
  - Upper respiratory tract inflammation [Recovered/Resolved]
  - Melaena [Recovering/Resolving]
  - Splenic vein thrombosis [Recovered/Resolved]
  - Rash [Recovered/Resolved]

NARRATIVE: CASE EVENT DATE: 20130811
